APPROVED DRUG PRODUCT: TRIFLUOPERAZINE HYDROCHLORIDE
Active Ingredient: TRIFLUOPERAZINE HYDROCHLORIDE
Strength: EQ 2MG BASE
Dosage Form/Route: TABLET;ORAL
Application: A085786 | Product #001 | TE Code: AB
Applicant: SANDOZ INC
Approved: Approved Prior to Jan 1, 1982 | RLD: No | RS: No | Type: RX